FAERS Safety Report 8294813-6 (Version None)
Quarter: 2012Q2

REPORT INFORMATION
  Report Type: 
  Country: None (occurrence: None)
  Receive Date: 20120418
  Receipt Date: 20120410
  Transmission Date: 20120825
  Serious: Yes (Hospitalization)
  Sender: FDA-Public Use
  Company Number: US-JNJFOC-20120405085

PATIENT
  Age: 53 Year
  Sex: Female
  Weight: 70.5 kg

DRUGS (5)
  1. BEVACIZUMAB [Suspect]
     Indication: BREAST CANCER
     Route: 042
     Dates: start: 20110712
  2. CYCLOPHOSPHAMIDE [Suspect]
     Indication: BREAST CANCER
     Route: 065
  3. DOXORUBICIN HCL [Suspect]
     Indication: BREAST CANCER
     Route: 042
     Dates: end: 20110824
  4. PACLITAXEL [Suspect]
     Indication: BREAST CANCER
     Route: 065
     Dates: end: 20111110
  5. PEGFILGRASTIM [Suspect]
     Indication: BREAST CANCER
     Route: 065
     Dates: end: 20110825

REACTIONS (1)
  - MYOCARDIAL INFARCTION [None]
